FAERS Safety Report 23942028 (Version 2)
Quarter: 2024Q2

REPORT INFORMATION
  Report Type: Spontaneous
  Country: US (occurrence: US)
  Receive Date: 20240605
  Receipt Date: 20240628
  Transmission Date: 20240716
  Serious: No
  Sender: FDA-Public Use
  Company Number: US-SANOFI-02072264

PATIENT
  Age: 11 Year
  Sex: Male

DRUGS (1)
  1. DUPIXENT [Suspect]
     Active Substance: DUPILUMAB
     Indication: Asthma
     Dosage: 200 MG, QOW
     Route: 058
     Dates: start: 202312

REACTIONS (3)
  - Panic attack [Unknown]
  - Illness [Unknown]
  - Injection site pain [Unknown]

NARRATIVE: CASE EVENT DATE: 20240401
